FAERS Safety Report 13904868 (Version 1)
Quarter: 2017Q3

REPORT INFORMATION
  Report Type: Spontaneous
  Country: US (occurrence: US)
  Receive Date: 20170824
  Receipt Date: 20170824
  Transmission Date: 20171127
  Serious: No
  Sender: FDA-Public Use
  Company Number: None

PATIENT
  Age: 65 Year
  Sex: Female
  Weight: 59.4 kg

DRUGS (9)
  1. CHEWABLE GUMMI VITAMINS [Concomitant]
  2. ATENOLOL. [Concomitant]
     Active Substance: ATENOLOL
  3. BENADRYL [Concomitant]
     Active Substance: DIPHENHYDRAMINE HYDROCHLORIDE
  4. TYLENOL [Concomitant]
     Active Substance: ACETAMINOPHEN
  5. MOTRIN [Concomitant]
     Active Substance: IBUPROFEN
  6. VALIUM [Concomitant]
     Active Substance: DIAZEPAM
  7. LIPITOR [Concomitant]
     Active Substance: ATORVASTATIN CALCIUM
  8. TOPIRAMATE. [Suspect]
     Active Substance: TOPIRAMATE
     Indication: MIGRAINE
     Dosage: ?          QUANTITY:1 TABLET(S);?
     Route: 048
     Dates: start: 20170815, end: 20170823
  9. PEPCID [Concomitant]
     Active Substance: FAMOTIDINE

REACTIONS (6)
  - Pruritus [None]
  - Paraesthesia [None]
  - Muscle twitching [None]
  - Paraesthesia oral [None]
  - Oral discomfort [None]
  - Formication [None]

NARRATIVE: CASE EVENT DATE: 20170822
